FAERS Safety Report 9384249 (Version 1)
Quarter: 2013Q3

REPORT INFORMATION
  Report Type: Spontaneous
  Country: US (occurrence: None)
  Receive Date: 20130702
  Receipt Date: 20130702
  Transmission Date: 20140515
  Serious: Yes (Hospitalization)
  Sender: FDA-Public Use
  Company Number: None

PATIENT
  Age: 51 Year
  Sex: Female

DRUGS (11)
  1. ADRIAMYCIN [Suspect]
     Indication: BREAST CANCER
  2. CYCLOPHOSPHAMIDE [Suspect]
  3. NEULASTA [Suspect]
  4. ALPRAZOLAM [Concomitant]
  5. BUPROPION [Concomitant]
  6. CALCIUM W/D [Concomitant]
  7. FENOFIBRATE [Concomitant]
  8. FLUCTICASONE [Concomitant]
  9. METOPROLOL [Concomitant]
  10. ONDANSETRON [Concomitant]
  11. SEROQUEL [Concomitant]

REACTIONS (4)
  - Pancytopenia [None]
  - Mucosal inflammation [None]
  - Dysphagia [None]
  - Febrile neutropenia [None]
